FAERS Safety Report 13901886 (Version 2)
Quarter: 2017Q3

REPORT INFORMATION
  Report Type: Report from Study
  Country: AU (occurrence: AU)
  Receive Date: 20170824
  Receipt Date: 20170911
  Transmission Date: 20171127
  Serious: Yes (Other)
  Sender: FDA-Public Use
  Company Number: AU-AMGEN-AUSSP2017126469

PATIENT
  Age: 66 Year
  Sex: Female

DRUGS (1)
  1. KYPROLIS [Suspect]
     Active Substance: CARFILZOMIB
     Indication: PLASMA CELL MYELOMA
     Dosage: 90 MG, UNK CYCLE 1 (THERAPEUTIC DOSE)
     Route: 065
     Dates: start: 20170725, end: 20170802

REACTIONS (3)
  - Plasma cell myeloma [Unknown]
  - Bladder cancer [Unknown]
  - Renal failure [Unknown]

NARRATIVE: CASE EVENT DATE: 2017
